FAERS Safety Report 21821753 (Version 2)
Quarter: 2023Q4

REPORT INFORMATION
  Report Type: Other
  Country: US (occurrence: None)
  Receive Date: 20230105
  Receipt Date: 20231010
  Transmission Date: 20240110
  Serious: Yes (Hospitalization, Other)
  Sender: FDA-Public Use
  Company Number: US-ROCHE-3256310

PATIENT
  Age: 60 Year
  Sex: Male
  Weight: 120.31 kg

DRUGS (4)
  1. OCREVUS [Suspect]
     Active Substance: OCRELIZUMAB
     Indication: Relapsing-remitting multiple sclerosis
     Dosage: PATIENT STATES HE BEGAN IT EITHER 2019 OR 2020 ;ONGOING: UNKNOWN
     Route: 042
  2. OCREVUS [Suspect]
     Active Substance: OCRELIZUMAB
     Indication: Secondary progressive multiple sclerosis
  3. ALPRAZOLAM [Concomitant]
     Active Substance: ALPRAZOLAM
     Dosage: PATIENT STATES THE DOSE VARIES FROM 0.5MG-1 MG DEPENDING ON HOW HE?FEELS, + HE TAKES IT AT NIGHT
     Route: 048
  4. ADDERALL XR [Concomitant]
     Active Substance: AMPHETAMINE ASPARTATE\AMPHETAMINE SULFATE\DEXTROAMPHETAMINE SACCHARATE\DEXTROAMPHETAMINE SULFATE
     Dosage: PATIENT STATES HE TAKES IT IN THE MORNING
     Route: 048

REACTIONS (7)
  - Thyroid cancer [Recovered/Resolved]
  - Fall [Unknown]
  - Hip fracture [Recovered/Resolved]
  - Arthralgia [Not Recovered/Not Resolved]
  - Anxiety [Not Recovered/Not Resolved]
  - Stress [Not Recovered/Not Resolved]
  - Heart rate increased [Not Recovered/Not Resolved]

NARRATIVE: CASE EVENT DATE: 20230101
